FAERS Safety Report 6162538-9 (Version None)
Quarter: 2009Q2

REPORT INFORMATION
  Report Type: 
  Country: None (occurrence: None)
  Receive Date: 20090421
  Receipt Date: 20090410
  Transmission Date: 20091009
  Serious: Yes (Life-Threatening, Disabling)
  Sender: FDA-Public Use
  Company Number: JP-PFIZER INC-2009197172

PATIENT

DRUGS (8)
  1. IRINOTECAN HCL [Suspect]
     Indication: COLON CANCER
     Dosage: 200 MG ONCE
     Route: 042
     Dates: start: 20090120, end: 20090120
  2. IRINOTECAN HCL [Suspect]
     Dosage: 210 MG, 1 IN 2 WK
     Route: 042
     Dates: start: 20090210, end: 20090224
  3. ERBITUX [Suspect]
     Indication: COLON CANCER
     Dosage: 500 MG, ONCE
     Route: 042
     Dates: start: 20090120, end: 20090120
  4. ERBITUX [Suspect]
     Dosage: 340 MG, ONCE
     Route: 042
     Dates: start: 20090203, end: 20090203
  5. ERBITUX [Suspect]
     Dosage: 350 MG, 1 IN 1 WK
     Route: 042
     Dates: start: 20090210, end: 20090303
  6. POLARAMINE [Concomitant]
     Indication: PREMEDICATION
     Dosage: 10 MG, 1 IN 1 WK
     Route: 042
     Dates: start: 20090120, end: 20090303
  7. DECADRON [Concomitant]
     Indication: PREMEDICATION
     Dosage: 8 MG, 1 IN 1WK
     Route: 042
     Dates: start: 20090120, end: 20090303
  8. KYTRIL [Concomitant]
     Indication: ANTIEMETIC SUPPORTIVE CARE
     Dosage: 3 MG, UNK
     Route: 042
     Dates: start: 20090120, end: 20090303

REACTIONS (3)
  - DUODENAL ULCER PERFORATION [None]
  - HYPERKALAEMIA [None]
  - SKIN REACTION [None]
